FAERS Safety Report 8610355-X (Version None)
Quarter: 2012Q3

REPORT INFORMATION
  Report Type: 
  Country: None (occurrence: None)
  Receive Date: 20120822
  Receipt Date: 20120817
  Transmission Date: 20120928
  Serious: Yes (Life-Threatening, Other)
  Sender: FDA-Public Use
  Company Number: PHHY2012AR072000

PATIENT
  Sex: Male

DRUGS (1)
  1. EXFORGE [Suspect]
     Dosage: 1 TABLET DAILY
     Dates: end: 20120816

REACTIONS (3)
  - FEELING ABNORMAL [None]
  - BLOOD PRESSURE INCREASED [None]
  - DRUG INTOLERANCE [None]
